FAERS Safety Report 5623066-X (Version None)
Quarter: 2008Q1

REPORT INFORMATION
  Report Type: 
  Country: None (occurrence: None)
  Receive Date: 20080212
  Receipt Date: 20080211
  Transmission Date: 20080703
  Serious: Yes (Life-Threatening)
  Sender: FDA-Public Use
  Company Number: NZ-ASTRAZENECA-2008AP00909

PATIENT
  Age: 76 Year
  Sex: Female

DRUGS (5)
  1. OMEPRAZOLE [Suspect]
     Indication: OESOPHAGITIS
     Dosage: LONG TERM
     Route: 048
  2. CANDESARTAN [Suspect]
     Indication: ESSENTIAL HYPERTENSION
     Route: 048
     Dates: start: 20060506
  3. CIPROFLOXACIN [Suspect]
     Route: 048
     Dates: start: 20060811
  4. ACYCLOVIR [Suspect]
     Route: 048
     Dates: start: 20060811
  5. FLUCONAZOLE [Suspect]
     Route: 048
     Dates: start: 20060811

REACTIONS (1)
  - MYELODYSPLASTIC SYNDROME [None]
